FAERS Safety Report 6699896-2 (Version None)
Quarter: 2010Q2

REPORT INFORMATION
  Report Type: 
  Country: None (occurrence: None)
  Receive Date: 20100428
  Receipt Date: 20100421
  Transmission Date: 20101027
  Serious: Yes (Other)
  Sender: FDA-Public Use
  Company Number: GB-B.I. PHARMACEUTICALS,INC./RIDGEFIELD-2010-UK-00369UK

PATIENT
  Sex: Male

DRUGS (1)
  1. ASASANTIN RETARD [Suspect]
     Indication: TRANSIENT ISCHAEMIC ATTACK
     Dates: start: 20100322

REACTIONS (2)
  - ARTERIAL OCCLUSIVE DISEASE [None]
  - BLOOD URINE PRESENT [None]
